FAERS Safety Report 5238059-4 (Version None)
Quarter: 2007Q1

REPORT INFORMATION
  Report Type: 
  Country: None (occurrence: None)
  Receive Date: 20070215
  Receipt Date: 20070205
  Transmission Date: 20070707
  Serious: Yes (Life-Threatening, Hospitalization, Other)
  Sender: FDA-Public Use
  Company Number: HQWYE525226JAN06

PATIENT
  Sex: Male
  Weight: 59 kg

DRUGS (6)
  1. MYLOTARG [Suspect]
     Indication: ACUTE MYELOID LEUKAEMIA RECURRENT
     Route: 041
     Dates: start: 20051125, end: 20051125
  2. MYLOTARG [Suspect]
     Route: 041
     Dates: start: 20051209, end: 20051209
  3. TENORMIN [Concomitant]
     Indication: HYPERTENSION
     Dosage: 12.5 MG/DAY
     Route: 048
     Dates: end: 20051125
  4. NEORAL [Concomitant]
     Indication: PROPHYLAXIS
     Dosage: UNKNOWN
     Route: 048
     Dates: start: 20051007, end: 20051206
  5. ITRACONAZOLE [Concomitant]
     Indication: PROPHYLAXIS
     Dosage: 200 MG/DAY
     Route: 048
     Dates: start: 20050918
  6. BAKTAR [Concomitant]
     Indication: PROPHYLAXIS
     Dosage: 1 G/DAY
     Route: 048
     Dates: start: 20051009

REACTIONS (8)
  - DISSEMINATED INTRAVASCULAR COAGULATION [None]
  - FATIGUE [None]
  - FEBRILE NEUTROPENIA [None]
  - HYPOTENSION [None]
  - NEUTROPHIL COUNT DECREASED [None]
  - PNEUMONIA [None]
  - PYREXIA [None]
  - THROMBOCYTOPENIA [None]
